FAERS Safety Report 8262152-5 (Version None)
Quarter: 2012Q2

REPORT INFORMATION
  Report Type: 
  Country: None (occurrence: None)
  Receive Date: 20120405
  Receipt Date: 20120331
  Transmission Date: 20120825
  Serious: Yes (Other)
  Sender: FDA-Public Use
  Company Number: US-PFIZER INC-2012081928

PATIENT
  Sex: Male
  Weight: 83.9 kg

DRUGS (5)
  1. GABAPENTIN [Suspect]
     Indication: INTERVERTEBRAL DISC DEGENERATION
     Dosage: UNK
     Dates: end: 20110501
  2. ALBUTEROL SULFATE [Concomitant]
     Indication: ASTHMA
     Dosage: 2 PUFFS TWO TIMES A DAY
  3. LYRICA [Suspect]
     Indication: INTERVERTEBRAL DISC DEGENERATION
     Dosage: 30 MG, 2X/DAY
     Dates: start: 20110501, end: 20110101
  4. VICODIN [Concomitant]
     Indication: BACK PAIN
     Dosage: HALF A TABLET OF 5/500MG, AS NEEDED
  5. ADVAIR DISKUS 100/50 [Concomitant]
     Indication: ASTHMA
     Dosage: ONE PUFF TWO TIMES A DAY OF THE STRENGTH 25/150MCG

REACTIONS (3)
  - DENTAL CARIES [None]
  - DRY MOUTH [None]
  - ANGER [None]
